FAERS Safety Report 9132670 (Version 1)
Quarter: 2013Q1

REPORT INFORMATION
  Report Type: Report from Study
  Country: JP (occurrence: JP)
  Receive Date: 20130301
  Receipt Date: 20130301
  Transmission Date: 20140127
  Serious: Yes (Hospitalization, Other)
  Sender: FDA-Public Use
  Company Number: JP-B.I. PHARMACEUTICALS,INC./RIDGEFIELD-2013-BI-05085GD

PATIENT
  Age: 73 Year
  Sex: Male
  Weight: 66.6 kg

DRUGS (7)
  1. PRADAXA [Suspect]
     Indication: THROMBOSIS PROPHYLAXIS
     Dosage: 220 MG
     Route: 048
     Dates: start: 20111109, end: 20120201
  2. HALFDIGOXIN [Concomitant]
     Dosage: 0.125 MG
     Route: 048
     Dates: start: 20110520
  3. COVERSYL [Concomitant]
     Dosage: 8 MG
     Route: 048
     Dates: start: 20020928
  4. AMLODIN [Concomitant]
     Dosage: 7.5 MG
     Route: 048
     Dates: start: 20020830
  5. MAINTATE [Concomitant]
     Dosage: 2.5 MG
     Route: 048
     Dates: start: 20080516
  6. ZYLORIC [Concomitant]
     Dosage: 200 MG
     Route: 048
     Dates: start: 20020830
  7. NEXIUM [Concomitant]
     Dosage: 20 MG
     Route: 065
     Dates: start: 20111117

REACTIONS (4)
  - Alveolitis allergic [Not Recovered/Not Resolved]
  - Gastrointestinal haemorrhage [Not Recovered/Not Resolved]
  - Abdominal discomfort [Unknown]
  - Diverticulum intestinal haemorrhagic [Unknown]
